FAERS Safety Report 10433221 (Version 1)
Quarter: 2014Q3

REPORT INFORMATION
  Report Type: Spontaneous
  Country: FR (occurrence: FR)
  Receive Date: 20140905
  Receipt Date: 20140905
  Transmission Date: 20150326
  Serious: Yes (Death)
  Sender: FDA-Public Use
  Company Number: FR-PFIZER INC-2014243215

PATIENT
  Age: 65 Year
  Sex: Female

DRUGS (10)
  1. VIDAZA [Suspect]
     Active Substance: AZACITIDINE
     Dosage: 3RD COURSE
     Route: 058
     Dates: start: 20140227
  2. TAZOCILLINE [Suspect]
     Active Substance: PIPERACILLIN SODIUM\TAZOBACTAM SODIUM
     Indication: COLITIS
     Dosage: UNK
     Route: 041
     Dates: start: 20140228, end: 20140310
  3. ZYVOXID [Suspect]
     Active Substance: LINEZOLID
     Indication: COLITIS
     Dosage: UNK
     Route: 041
     Dates: start: 20140303, end: 20140312
  4. VIDAZA [Suspect]
     Active Substance: AZACITIDINE
     Indication: MYELODYSPLASTIC SYNDROME
     Dosage: 1ST COURSE
     Route: 058
     Dates: start: 20130930, end: 20131006
  5. ROCEPHINE [Suspect]
     Active Substance: CEFTRIAXONE SODIUM
     Indication: COLITIS
     Dosage: UNK
     Route: 051
     Dates: start: 20140225, end: 20140228
  6. ROCEPHINE [Suspect]
     Active Substance: CEFTRIAXONE SODIUM
     Dosage: UNK
     Route: 051
     Dates: start: 20140414, end: 20140428
  7. VIDAZA [Suspect]
     Active Substance: AZACITIDINE
     Dosage: 2ND COURSE
     Route: 058
     Dates: start: 20131114
  8. FLAGYL [Suspect]
     Active Substance: METRONIDAZOLE\METRONIDAZOLE HYDROCHLORIDE
     Indication: COLITIS
     Dosage: UNK
     Route: 048
     Dates: start: 20140225, end: 20140228
  9. FLAGYL [Suspect]
     Active Substance: METRONIDAZOLE\METRONIDAZOLE HYDROCHLORIDE
     Dosage: UNK
     Route: 048
     Dates: start: 20140303, end: 20140312
  10. FLAGYL [Suspect]
     Active Substance: METRONIDAZOLE\METRONIDAZOLE HYDROCHLORIDE
     Dosage: UNK
     Route: 048
     Dates: start: 20140414, end: 20140428

REACTIONS (3)
  - Encephalopathy [Fatal]
  - Colitis [Fatal]
  - Pancytopenia [Fatal]

NARRATIVE: CASE EVENT DATE: 2013
